FAERS Safety Report 12853216 (Version 1)
Quarter: 2016Q4

REPORT INFORMATION
  Report Type: Spontaneous
  Country: US (occurrence: US)
  Receive Date: 20161017
  Receipt Date: 20161017
  Transmission Date: 20170207
  Serious: Yes (Other)
  Sender: FDA-Public Use
  Company Number: US-PFIZER INC-2016479358

PATIENT
  Age: 29 Year
  Sex: Male

DRUGS (1)
  1. DIPHENHYDRAMINE HCL [Suspect]
     Active Substance: DIPHENHYDRAMINE HYDROCHLORIDE
     Dosage: 25000 MG, UNK

REACTIONS (8)
  - Overdose [Unknown]
  - Unresponsive to stimuli [None]
  - Suicide attempt [Unknown]
  - Blood pressure increased [None]
  - Sinus tachycardia [None]
  - Generalised tonic-clonic seizure [None]
  - Bundle branch block right [None]
  - Electrocardiogram abnormal [Recovered/Resolved]
